FAERS Safety Report 25460510 (Version 1)
Quarter: 2025Q2

REPORT INFORMATION
  Report Type: Spontaneous
  Country: US (occurrence: US)
  Receive Date: 20250620
  Receipt Date: 20250620
  Transmission Date: 20250716
  Serious: Yes (Life-Threatening, Hospitalization)
  Sender: AUROBINDO
  Company Number: US-MLMSERVICE-20250526-PI519119-00210-1

PATIENT
  Age: 73 Year
  Sex: Female

DRUGS (3)
  1. MILK OF MAGNESIA [Suspect]
     Active Substance: MAGNESIUM HYDROXIDE
     Indication: Chronic obstructive pulmonary disease
     Route: 042
  2. ALBUTEROL [Concomitant]
     Active Substance: ALBUTEROL
     Indication: Chronic obstructive pulmonary disease
  3. DEXAMETHASONE [Concomitant]
     Active Substance: DEXAMETHASONE
     Indication: Chronic obstructive pulmonary disease
     Route: 048

REACTIONS (6)
  - Administration site extravasation [Recovering/Resolving]
  - Haemorrhage [Recovering/Resolving]
  - Skin injury [Recovering/Resolving]
  - Incorrect route of product administration [Unknown]
  - Product preparation issue [Unknown]
  - Infusion site oedema [Unknown]
